FAERS Safety Report 8020599-6 (Version None)
Quarter: 2012Q1

REPORT INFORMATION
  Report Type: 
  Country: None (occurrence: None)
  Receive Date: 20120103
  Receipt Date: 20111229
  Transmission Date: 20120608
  Serious: Yes (Death)
  Sender: FDA-Public Use
  Company Number: IT-ASTRAZENECA-2011SE78960

PATIENT
  Age: 17968 Day
  Sex: Female

DRUGS (12)
  1. DIFLUCAN [Concomitant]
  2. RISPERDAL [Concomitant]
     Route: 048
  3. FRAGMIN [Concomitant]
     Dosage: 0,2 ML PRE-FILLED SYRINGE
     Route: 058
  4. PIPERACILLIN AND TAZOBACTAM [Concomitant]
  5. LINEZOLID [Concomitant]
  6. SEROQUEL [Suspect]
     Indication: DEPRESSION
     Route: 048
     Dates: start: 20060101, end: 20111203
  7. LASIX [Concomitant]
  8. MERREM [Concomitant]
  9. TARGOCID [Concomitant]
  10. LANSOPRAZOLE ABC PHARMA [Concomitant]
  11. AUGMENTIN '125' [Concomitant]
  12. CLARITHROMYCIN [Concomitant]

REACTIONS (1)
  - HYPERPYREXIA [None]
